FAERS Safety Report 5048174-6 (Version None)
Quarter: 2006Q3

REPORT INFORMATION
  Report Type: 
  Country: None (occurrence: None)
  Receive Date: 20060711
  Receipt Date: 20060630
  Transmission Date: 20061208
  Serious: Yes (Hospitalization)
  Sender: FDA-Public Use
  Company Number: FR-ROCHE-453733

PATIENT
  Age: 2 Month
  Sex: Male
  Weight: 4.7 kg

DRUGS (2)
  1. ROCEPHIN [Suspect]
     Indication: PYELONEPHRITIS
     Dosage: FORMULATION: INJECTABLE SOLUTION.
     Route: 042
     Dates: start: 20060605, end: 20060612
  2. AMIKLIN [Concomitant]
     Indication: PYELONEPHRITIS
     Route: 042
     Dates: start: 20060605, end: 20060606

REACTIONS (3)
  - HYPOTONIA [None]
  - MALAISE [None]
  - NEPHROCALCINOSIS [None]
